FAERS Safety Report 7761211-0 (Version None)
Quarter: 2011Q3

REPORT INFORMATION
  Report Type: 
  Country: None (occurrence: None)
  Receive Date: 20110920
  Receipt Date: 20110913
  Transmission Date: 20111222
  Serious: Yes (Hospitalization, Other)
  Sender: FDA-Public Use
  Company Number: GXKR2011DE02789

PATIENT
  Sex: Female
  Weight: 73 kg

DRUGS (2)
  1. CEFUROXIME [Suspect]
     Dosage: 250 MG, BID
     Dates: start: 20101224, end: 20101224
  2. CEFUROXIME [Suspect]
     Indication: SINUSITIS
     Dosage: 500 MG, BID
     Route: 048
     Dates: start: 20101219, end: 20101223

REACTIONS (4)
  - ENTEROCOLITIS HAEMORRHAGIC [None]
  - CHILLS [None]
  - GENERAL PHYSICAL HEALTH DETERIORATION [None]
  - DIARRHOEA HAEMORRHAGIC [None]
